FAERS Safety Report 5129418-9 (Version None)
Quarter: 2006Q4

REPORT INFORMATION
  Report Type: 
  Country: None (occurrence: None)
  Receive Date: 20061012
  Receipt Date: 20060929
  Transmission Date: 20070319
  Serious: Yes (Other)
  Sender: FDA-Public Use
  Company Number: 2006123130

PATIENT
  Age: 19 Year
  Sex: Female

DRUGS (2)
  1. CELEBREX [Suspect]
     Indication: OEDEMA PERIPHERAL
  2. CELEBREX [Suspect]
     Indication: PAIN IN EXTREMITY

REACTIONS (3)
  - HYPERCOAGULATION [None]
  - PULMONARY EMBOLISM [None]
  - SYNCOPE [None]
